FAERS Safety Report 22528561 (Version 1)
Quarter: 2023Q2

REPORT INFORMATION
  Report Type: Spontaneous
  Country: BR (occurrence: BR)
  Receive Date: 20230607
  Receipt Date: 20230607
  Transmission Date: 20230722
  Serious: Yes (Other)
  Sender: FDA-Public Use
  Company Number: BR-CELLTRION INC.-2022BR016028

PATIENT

DRUGS (9)
  1. TRUXIMA [Suspect]
     Active Substance: RITUXIMAB-ABBS
     Indication: Non-Hodgkin^s lymphoma
     Dosage: 600 MG D1C1
     Route: 042
     Dates: start: 20220912
  2. TRUXIMA [Suspect]
     Active Substance: RITUXIMAB-ABBS
     Dosage: 375 MILLIGRAM, EVERY 21 DAYS
     Route: 042
     Dates: start: 20230331
  3. VINCRISTINE [Concomitant]
     Active Substance: VINCRISTINE
     Indication: Non-Hodgkin^s lymphoma
     Dosage: 2 MILLIGRAM, D1C1
     Route: 042
  4. DOXORUBICIN [Concomitant]
     Active Substance: DOXORUBICIN
     Indication: Non-Hodgkin^s lymphoma
     Dosage: 79.5 MILLIGRAM, D1C1
     Route: 042
  5. CYCLOPHOSPHAMIDE [Concomitant]
     Active Substance: CYCLOPHOSPHAMIDE
     Indication: Non-Hodgkin^s lymphoma
     Dosage: 1192.5 MILLIGRAM, D1C1
     Route: 042
  6. DEXAMETHASONE [Concomitant]
     Active Substance: DEXAMETHASONE
     Indication: Premedication
     Dosage: 20 MILLIGRAM
     Route: 042
  7. DIPHENHYDRAMINE [Concomitant]
     Active Substance: DIPHENHYDRAMINE
     Indication: Premedication
     Dosage: 50 MILLIGRAM
     Route: 042
  8. ONDANSETRON [Concomitant]
     Active Substance: ONDANSETRON
     Indication: Premedication
     Dosage: 8 MILLIGRAM
     Route: 042
  9. ACETAMINOPHEN [Concomitant]
     Active Substance: ACETAMINOPHEN
     Indication: Premedication
     Dosage: 750 MG
     Route: 042

REACTIONS (5)
  - Hypertension [Unknown]
  - Throat irritation [Recovered/Resolved]
  - Cough [Recovered/Resolved]
  - Overdose [Unknown]
  - Expired product administered [Unknown]

NARRATIVE: CASE EVENT DATE: 20220912
